FAERS Safety Report 19637964 (Version 1)
Quarter: 2021Q3

REPORT INFORMATION
  Report Type: Spontaneous
  Country: US (occurrence: US)
  Receive Date: 20210730
  Receipt Date: 20210730
  Transmission Date: 20211014
  Serious: Yes (Other)
  Sender: FDA-Public Use
  Company Number: US-VERTEX PHARMACEUTICALS-2021-000458

PATIENT
  Sex: Female
  Weight: 107 kg

DRUGS (1)
  1. TRIKAFTA [Suspect]
     Active Substance: ELEXACAFTOR\IVACAFTOR\TEZACAFTOR
     Indication: CYSTIC FIBROSIS
     Dosage: 2 TABS (100 MG ELEXACAFTOR/ 50 MG TEZACAFTOR/ 75 MG IVACAFTOR) AM AND 1 TAB (150MG IVACAFTOR) PM
     Route: 048
     Dates: start: 20200417, end: 20210201

REACTIONS (12)
  - Gastritis [Unknown]
  - Anxiety [Recovering/Resolving]
  - Diarrhoea [Recovered/Resolved]
  - Ovarian cyst [Unknown]
  - Eructation [Recovered/Resolved]
  - Presyncope [Recovered/Resolved]
  - Uterine cyst [Unknown]
  - Abdominal pain upper [Recovered/Resolved]
  - Tremor [Recovering/Resolving]
  - Loss of consciousness [Recovered/Resolved]
  - Abdominal distension [Recovered/Resolved]
  - Oesophageal discomfort [Recovered/Resolved]

NARRATIVE: CASE EVENT DATE: 2020
